FAERS Safety Report 7986926-0 (Version None)
Quarter: 2011Q4

REPORT INFORMATION
  Report Type: 
  Country: None (occurrence: None)
  Receive Date: 20111216
  Receipt Date: 20110908
  Transmission Date: 20120403
  Serious: No
  Sender: FDA-Public Use
  Company Number: US-BRISTOL-MYERS SQUIBB COMPANY-16042624

PATIENT
  Age: 3 Decade
  Sex: Female

DRUGS (2)
  1. ABILIFY [Suspect]
     Indication: MAJOR DEPRESSION
     Dosage: FORMU: EITHER 2/5MG TABS DURATION: COUPLE OF MONTHS
  2. WARFARIN SODIUM [Suspect]

REACTIONS (2)
  - CONTUSION [None]
  - BALANCE DISORDER [None]
